FAERS Safety Report 6822715-8 (Version None)
Quarter: 2010Q3

REPORT INFORMATION
  Report Type: 
  Country: None (occurrence: None)
  Receive Date: 20100708
  Receipt Date: 20100628
  Transmission Date: 20110219
  Serious: Yes (Other)
  Sender: FDA-Public Use
  Company Number: DE-PFIZER INC-2010080051

PATIENT
  Age: 62 Year
  Sex: Female

DRUGS (1)
  1. FARMORUBICIN [Suspect]

REACTIONS (2)
  - COLITIS ISCHAEMIC [None]
  - HAEMORRHAGE [None]
